FAERS Safety Report 6346260-1 (Version None)
Quarter: 2009Q3

REPORT INFORMATION
  Report Type: 
  Country: None (occurrence: None)
  Receive Date: 20090909
  Receipt Date: 20090904
  Transmission Date: 20100115
  Serious: Yes (Hospitalization)
  Sender: FDA-Public Use
  Company Number: PHHO2009SK07696

PATIENT
  Sex: Female
  Weight: 69 kg

DRUGS (13)
  1. BLINDED ALISKIREN ALI+CTAB [Suspect]
     Indication: CARDIAC FAILURE
     Dosage: NO TREATMENT
  2. BLINDED ENALAPRIL COMP-ENA+ [Suspect]
     Indication: CARDIAC FAILURE
     Dosage: NO TREATMENT
  3. BLINDED NO TREATMENT RECEIVED NOMED [Suspect]
     Indication: CARDIAC FAILURE
     Dosage: NO TREATMENT
  4. ALISKIREN [Suspect]
     Indication: CARDIAC FAILURE
     Dosage: UNK
     Route: 048
     Dates: start: 20090327, end: 20090630
  5. ALISKIREN [Suspect]
     Dosage: NO TREATMENT
     Dates: start: 20090701
  6. COMPARATOR ENALAPRIL [Suspect]
     Indication: CARDIAC FAILURE
     Dosage: UNK
     Route: 048
     Dates: start: 20090327, end: 20090630
  7. COMPARATOR ENALAPRIL [Suspect]
     Dosage: NO TREATMENT
     Dates: start: 20090701
  8. TALLITON [Concomitant]
     Indication: CARDIAC FAILURE
  9. OLICARD [Concomitant]
     Indication: CARDIAC FAILURE
  10. FUROSEMIDE [Concomitant]
  11. ATORIS (ATORVASTATIN CALCIUM) [Concomitant]
     Indication: DYSLIPIDAEMIA
  12. EUPHYLLINE [Concomitant]
     Indication: CHRONIC OBSTRUCTIVE PULMONARY DISEASE
  13. LEXAURIN [Concomitant]

REACTIONS (6)
  - ASTHENIA [None]
  - CHRONIC OBSTRUCTIVE PULMONARY DISEASE [None]
  - COUGH [None]
  - DYSPNOEA [None]
  - PNEUMONIA [None]
  - PRODUCTIVE COUGH [None]
